FAERS Safety Report 5999707-4 (Version None)
Quarter: 2008Q4

REPORT INFORMATION
  Report Type: 
  Country: None (occurrence: None)
  Receive Date: 20081215
  Receipt Date: 20081208
  Transmission Date: 20090506
  Serious: Yes (Hospitalization)
  Sender: FDA-Public Use
  Company Number: JP-ASTRAZENECA-2008AP08341

PATIENT
  Age: 68 Year
  Sex: Male

DRUGS (7)
  1. PULMICORT [Suspect]
     Indication: INTERSTITIAL LUNG DISEASE
     Route: 055
     Dates: start: 20080819
  2. HANGE-KOBOKU-TO [Concomitant]
     Route: 048
     Dates: start: 20060905
  3. KIPRES [Concomitant]
     Route: 048
     Dates: start: 20061017
  4. MUCODYNE [Concomitant]
     Route: 048
     Dates: start: 20070116
  5. BROCIN [Concomitant]
     Route: 048
     Dates: start: 20080422
  6. SPIRIVA [Concomitant]
     Route: 055
     Dates: start: 20080807
  7. BAKUMONDO-TO [Concomitant]
     Route: 048
     Dates: start: 20080905

REACTIONS (3)
  - ADRENAL INSUFFICIENCY [None]
  - DIABETES MELLITUS INADEQUATE CONTROL [None]
  - INFECTION [None]
